FAERS Safety Report 12076296 (Version 1)
Quarter: 2016Q1

REPORT INFORMATION
  Report Type: Report from Study
  Country: DE (occurrence: DE)
  Receive Date: 20160215
  Receipt Date: 20160215
  Transmission Date: 20160526
  Serious: Yes (Hospitalization, Other)
  Sender: FDA-Public Use
  Company Number: DE-ROCHE-1710254

PATIENT
  Age: 58 Year
  Sex: Female

DRUGS (4)
  1. DACLATASVIR. [Suspect]
     Active Substance: DACLATASVIR
     Indication: CHRONIC HEPATITIS C
     Route: 048
  2. SOFOSBUVIR [Suspect]
     Active Substance: SOFOSBUVIR
     Indication: CHRONIC HEPATITIS C
     Route: 048
  3. RIBAVIRIN. [Suspect]
     Active Substance: RIBAVIRIN
     Indication: CHRONIC HEPATITIS C
     Dosage: DOSE AS ACCORDING TO BODY WEIGHT, RENAL FUNCTION, AND HEMOGLOBIN LEVEL.
     Route: 048
  4. RIBAVIRIN. [Suspect]
     Active Substance: RIBAVIRIN
     Route: 048

REACTIONS (5)
  - Bacterial infection [Unknown]
  - Hepatic encephalopathy [Unknown]
  - Renal failure [Unknown]
  - Lactic acidosis [Unknown]
  - Hepatic failure [Unknown]
